FAERS Safety Report 9735272 (Version 2)
Quarter: 2014Q2

REPORT INFORMATION
  Report Type: Spontaneous
  Country: JP (occurrence: JP)
  Receive Date: 20131206
  Receipt Date: 20140401
  Transmission Date: 20141212
  Serious: Yes (Hospitalization)
  Sender: FDA-Public Use
  Company Number: JP-PFIZER INC-2013344747

PATIENT
  Age: 59 Year
  Sex: Female

DRUGS (2)
  1. PREMARIN [Suspect]
     Indication: MENOPAUSAL SYMPTOMS
     Route: 048
  2. PROVERA [Suspect]
     Indication: MENOPAUSAL SYMPTOMS
     Route: 048

REACTIONS (8)
  - Malaise [Unknown]
  - Chills [Unknown]
  - Drug-induced liver injury [Unknown]
  - Granulocytopenia [Unknown]
  - Alanine aminotransferase increased [Unknown]
  - Aspartate aminotransferase increased [Unknown]
  - Diarrhoea [Unknown]
  - Pyrexia [Unknown]
